FAERS Safety Report 5473046-2 (Version None)
Quarter: 2007Q4

REPORT INFORMATION
  Report Type: 
  Country: None (occurrence: None)
  Receive Date: 20071001
  Receipt Date: 20070215
  Transmission Date: 20080405
  Serious: No
  Sender: FDA-Public Use
  Company Number: US-ASTRAZENECA-2007UW03058

PATIENT
  Age: 59 Year
  Sex: Female
  Weight: 79.1 kg

DRUGS (2)
  1. ARIMIDEX [Suspect]
     Indication: BREAST CANCER
     Route: 048
  2. LEXAPRO [Concomitant]

REACTIONS (6)
  - BACK PAIN [None]
  - BLINDNESS [None]
  - CHILLS [None]
  - HOT FLUSH [None]
  - WEIGHT DECREASED [None]
  - WEIGHT INCREASED [None]
